FAERS Safety Report 11282242 (Version 2)
Quarter: 2015Q3

REPORT INFORMATION
  Report Type: Spontaneous
  Country: GB (occurrence: GB)
  Receive Date: 20150720
  Receipt Date: 20150921
  Transmission Date: 20151125
  Serious: Yes (Other)
  Sender: FDA-Public Use
  Company Number: GB-AMGEN-GBRSP2015038160

PATIENT
  Age: 75 Year
  Sex: Female

DRUGS (3)
  1. SULFASALAZINE. [Suspect]
     Active Substance: SULFASALAZINE
     Indication: PRODUCT USED FOR UNKNOWN INDICATION
     Dosage: 4 DF (TABLET), DAILY
     Route: 065
     Dates: end: 2015
  2. METHOTREXATE [Concomitant]
     Active Substance: METHOTREXATE
     Dosage: 8 DF (TABLET), WEEKLY
  3. ENBREL [Suspect]
     Active Substance: ETANERCEPT
     Indication: RHEUMATOID ARTHRITIS
     Dosage: 50 MG, WEEKLY
     Route: 065
     Dates: start: 20150323

REACTIONS (3)
  - Bladder neoplasm [Unknown]
  - Bladder cancer [Unknown]
  - Haematuria [Unknown]

NARRATIVE: CASE EVENT DATE: 201504
